FAERS Safety Report 14063932 (Version 3)
Quarter: 2018Q1

REPORT INFORMATION
  Report Type: Spontaneous
  Country: AU (occurrence: AU)
  Receive Date: 20171009
  Receipt Date: 20180308
  Transmission Date: 20180508
  Serious: Yes (Death, Other)
  Sender: FDA-Public Use
  Company Number: PHHY2017AU147737

PATIENT
  Age: 58 Year
  Sex: Male

DRUGS (11)
  1. CYTARABINE. [Suspect]
     Active Substance: CYTARABINE
     Dosage: 100 MG/M2, QD (DAY 1,3,5)
     Route: 042
     Dates: start: 20150409
  2. CYTARABINE. [Suspect]
     Active Substance: CYTARABINE
     Dosage: 100 MG/M2, QD (DAY 1 TO 5)
     Route: 042
     Dates: start: 20151112
  3. POSACONAZOL [Suspect]
     Active Substance: POSACONAZOLE
     Dosage: 200 MG, TID
     Route: 065
     Dates: start: 20151112
  4. POSACONAZOL [Suspect]
     Active Substance: POSACONAZOLE
     Dosage: UNK
     Route: 065
     Dates: start: 20150409
  5. IDARUBICIN [Suspect]
     Active Substance: IDARUBICIN
     Indication: ACUTE MONOCYTIC LEUKAEMIA
     Dosage: 12 MG/M2, QD (DAY 1 TO 3)
     Route: 042
     Dates: start: 20150226
  6. G-CSF [Suspect]
     Active Substance: GRANULOCYTE COLONY-STIMULATING FACTOR NOS
     Indication: ACUTE MONOCYTIC LEUKAEMIA
     Dosage: 300 MG, QD (DAY 0 TO 6)
     Route: 058
     Dates: start: 20151112
  7. IDARUBICIN [Suspect]
     Active Substance: IDARUBICIN
     Dosage: 12 MG/M2, QD (DAY 1 TO 2)
     Route: 042
     Dates: start: 20150409
  8. CYTARABINE. [Suspect]
     Active Substance: CYTARABINE
     Indication: ACUTE MONOCYTIC LEUKAEMIA
     Dosage: 100 MG/M2, QD (DAY 1 TO 3)
     Route: 042
     Dates: start: 20150226
  9. POSACONAZOL [Suspect]
     Active Substance: POSACONAZOLE
     Indication: PRODUCT USED FOR UNKNOWN INDICATION
     Dosage: UNK
     Route: 065
     Dates: start: 20150220
  10. AMSACRINE [Suspect]
     Active Substance: AMSACRINE
     Indication: ACUTE MONOCYTIC LEUKAEMIA
     Dosage: 100 MG/M2, QD (DAY 1 TO 3)
     Route: 042
     Dates: start: 20151112
  11. FLUDARABINE [Suspect]
     Active Substance: FLUDARABINE PHOSPHATE
     Indication: ACUTE MONOCYTIC LEUKAEMIA
     Dosage: 30 MG/M2, QD (DAY 1 TO 5)
     Route: 042
     Dates: start: 20151112

REACTIONS (2)
  - Death [Fatal]
  - Acute myeloid leukaemia recurrent [Unknown]

NARRATIVE: CASE EVENT DATE: 20151216
